FAERS Safety Report 9985603 (Version 1)
Quarter: 2014Q1

REPORT INFORMATION
  Report Type: Spontaneous
  Country: US (occurrence: US)
  Receive Date: 20140307
  Receipt Date: 20140307
  Transmission Date: 20141002
  Serious: Yes (Other)
  Sender: FDA-Public Use
  Company Number: US-BAYER-2014-033346

PATIENT
  Age: 38 Year
  Sex: Female
  Weight: 82.99 kg

DRUGS (11)
  1. YAZ [Suspect]
  2. YASMIN [Suspect]
     Dosage: UNK
  3. TOPOMAX [Concomitant]
     Dosage: 100 MG
  4. CITALOPRAM [Concomitant]
     Dosage: 40 MG
  5. NASONEX [Concomitant]
  6. FOLIC ACID [Concomitant]
     Dosage: 400 MCG
  7. ADVAIR [Concomitant]
     Dosage: 100 MCG
  8. MOTRIN [Concomitant]
     Dosage: 800 MG
  9. VIACTIV [CALCIUM] [Concomitant]
  10. CLARINEX [DESLORATADINE] [Concomitant]
     Dosage: 5 MG
  11. DETROL [Concomitant]
     Indication: STRESS URINARY INCONTINENCE

REACTIONS (1)
  - Deep vein thrombosis [None]
